FAERS Safety Report 19085028 (Version 1)
Quarter: 2021Q2

REPORT INFORMATION
  Report Type: Spontaneous
  Country: RU (occurrence: RU)
  Receive Date: 20210401
  Receipt Date: 20210401
  Transmission Date: 20210717
  Serious: Yes (Other)
  Sender: FDA-Public Use
  Company Number: RU-AMGEN-RUSSP2021047195

PATIENT

DRUGS (4)
  1. CHOLECALCIFEROL [Concomitant]
     Active Substance: CHOLECALCIFEROL
  2. PROLIA [Suspect]
     Active Substance: DENOSUMAB
     Indication: OSTEOPOROSIS
     Dosage: UNK
     Route: 065
  3. VITAMIN K2 [MENAQUINONE] [Concomitant]
     Active Substance: MENAQUINONE 6
  4. CALCIUM + MAGNESIUM + ZINK [Concomitant]

REACTIONS (5)
  - Off label use [Unknown]
  - Fracture [Unknown]
  - Fall [Unknown]
  - Vitamin D deficiency [Unknown]
  - Gastric ulcer [Unknown]
